FAERS Safety Report 5215538-7 (Version None)
Quarter: 2007Q1

REPORT INFORMATION
  Report Type: 
  Country: None (occurrence: None)
  Receive Date: 20070123
  Receipt Date: 20070112
  Transmission Date: 20070707
  Serious: Yes (Hospitalization)
  Sender: FDA-Public Use
  Company Number: GB-JNJFOC-20070102882

PATIENT
  Age: 26 Year
  Sex: Male

DRUGS (7)
  1. REMICADE [Suspect]
     Dosage: PATIENT RECEIVED 10ML OF 5MG/KG DOSE.
     Route: 042
  2. REMICADE [Suspect]
     Route: 042
  3. REMICADE [Suspect]
     Route: 042
  4. REMICADE [Suspect]
     Route: 042
  5. REMICADE [Suspect]
     Route: 042
  6. REMICADE [Suspect]
     Indication: CROHN'S DISEASE
     Route: 042
  7. AZATHIOPRINE [Concomitant]
     Route: 065

REACTIONS (6)
  - AGITATION [None]
  - BLOOD PRESSURE INCREASED [None]
  - CHEST DISCOMFORT [None]
  - INFUSION RELATED REACTION [None]
  - MYALGIA [None]
  - VOMITING [None]
